FAERS Safety Report 18418843 (Version 1)
Quarter: 2020Q4

REPORT INFORMATION
  Report Type: Report from Study
  Country: US (occurrence: US)
  Receive Date: 20201023
  Receipt Date: 20201023
  Transmission Date: 20210114
  Serious: Yes (Hospitalization)
  Sender: FDA-Public Use
  Company Number: US-ROCHE-2536197

PATIENT
  Age: 47 Year
  Sex: Male

DRUGS (15)
  1. OBINUTUZUMAB. [Suspect]
     Active Substance: OBINUTUZUMAB
     Indication: B-CELL LYMPHOMA REFRACTORY
     Dosage: DAYS 1-7
     Route: 042
     Dates: start: 20191231
  2. PREDNISONE. [Suspect]
     Active Substance: PREDNISONE
     Indication: DIFFUSE LARGE B-CELL LYMPHOMA
  3. VENETOCLAX. [Suspect]
     Active Substance: VENETOCLAX
     Indication: B-CELL LYMPHOMA REFRACTORY
     Dosage: DATE OF LAST RECEIVED DOSE OF VENETOCLAX PRIOR TO SAE ONSET: 13/JAN/2020?50 MG -} 800 MG DAYS 2-14
     Route: 048
     Dates: start: 20191231
  4. LENALIDOMIDE [Suspect]
     Active Substance: LENALIDOMIDE
     Indication: B-CELL LYMPHOMA REFRACTORY
     Dosage: DAYS 1-14?DATE OF LAST DOSE OF LENALIDOMIDE PRIOR TO SAE ONSET: 13/JAN/2020.
     Route: 048
     Dates: start: 20191231
  5. LENALIDOMIDE [Suspect]
     Active Substance: LENALIDOMIDE
     Indication: DIFFUSE LARGE B-CELL LYMPHOMA
  6. LOPERAMIDE [Concomitant]
     Active Substance: LOPERAMIDE
     Dates: start: 20200119
  7. OXYCODONE [Concomitant]
     Active Substance: OXYCODONE
     Dates: start: 20200117
  8. OBINUTUZUMAB. [Suspect]
     Active Substance: OBINUTUZUMAB
     Indication: DIFFUSE LARGE B-CELL LYMPHOMA
  9. ZOFRAN [Concomitant]
     Active Substance: ONDANSETRON HYDROCHLORIDE
     Dates: start: 20200113
  10. PREDNISONE. [Suspect]
     Active Substance: PREDNISONE
     Indication: B-CELL LYMPHOMA REFRACTORY
     Dosage: DAYS 1-7
     Route: 048
     Dates: start: 20191231
  11. IBRUTINIB [Suspect]
     Active Substance: IBRUTINIB
     Indication: B-CELL LYMPHOMA REFRACTORY
     Dosage: DAY 1-14?DATE OF MOST RECENT DOSE OF IBRUTINIB PRIOR TO SAE ONSET: 13/JAN/2020.
     Route: 048
     Dates: start: 20191231
  12. VENETOCLAX. [Suspect]
     Active Substance: VENETOCLAX
     Indication: DIFFUSE LARGE B-CELL LYMPHOMA
  13. SALINE [Concomitant]
     Active Substance: SODIUM CHLORIDE
  14. IBRUTINIB [Suspect]
     Active Substance: IBRUTINIB
     Indication: DIFFUSE LARGE B-CELL LYMPHOMA
  15. ACETAMINOPHEN. [Concomitant]
     Active Substance: ACETAMINOPHEN
     Dates: start: 20200113

REACTIONS (1)
  - Ascites [Recovered/Resolved]

NARRATIVE: CASE EVENT DATE: 20200121
